FAERS Safety Report 7784530-0 (Version None)
Quarter: 2011Q3

REPORT INFORMATION
  Report Type: 
  Country: None (occurrence: None)
  Receive Date: 20110928
  Receipt Date: 20110920
  Transmission Date: 20111222
  Serious: Yes (Other)
  Sender: FDA-Public Use
  Company Number: US-UCBSA-034910

PATIENT
  Sex: Female
  Weight: 79.37 kg

DRUGS (9)
  1. CICLOPIROX POLISH [Concomitant]
     Indication: ANTIFUNGAL TREATMENT
     Dosage: ONE TIME ONE DAY
     Route: 061
     Dates: start: 20110807
  2. LOW-OGESTREL-21 [Concomitant]
     Indication: ORAL CONTRACEPTION
     Dosage: ONE TAB ONE DAY
     Route: 048
     Dates: start: 20100901
  3. HYDROXYCHLOROQUINE SULFATE [Concomitant]
     Indication: AUTOIMMUNE DISORDER
  4. SPIRONOLACTONE [Concomitant]
     Indication: ALOPECIA
     Route: 048
     Dates: start: 20110101
  5. CIMZIA [Suspect]
     Indication: RHEUMATOID ARTHRITIS
     Route: 058
     Dates: start: 20110315
  6. PLAQUENIL [Concomitant]
     Indication: AUTOIMMUNE DISORDER
     Route: 048
     Dates: start: 20060101
  7. SYNTHROID [Concomitant]
     Indication: HYPOTHYROIDISM
     Dosage: 2 TIMS ON SUNDAY
     Route: 048
     Dates: start: 20030101
  8. LO/OVRAL [Concomitant]
     Indication: OVARIAN CYST
     Dosage: 28'S NON-STOP DAILY-NO PLACEBO
  9. DICYCLOLOMINE [Concomitant]
     Indication: IRRITABLE BOWEL SYNDROME
     Route: 048
     Dates: start: 20100901

REACTIONS (8)
  - DIZZINESS [None]
  - CARDIAC DISCOMFORT [None]
  - PAIN [None]
  - TREMOR [None]
  - FATIGUE [None]
  - MUSCULOSKELETAL STIFFNESS [None]
  - COGNITIVE DISORDER [None]
  - LYME DISEASE [None]
